FAERS Safety Report 13414686 (Version 3)
Quarter: 2017Q2

REPORT INFORMATION
  Report Type: Report from Study
  Country: DE (occurrence: DE)
  Receive Date: 20170406
  Receipt Date: 20170421
  Transmission Date: 20170830
  Serious: Yes (Hospitalization)
  Sender: FDA-Public Use
  Company Number: PHHO2017DE004432

PATIENT
  Age: 34 Year
  Sex: Female

DRUGS (18)
  1. CISPLATIN. [Suspect]
     Active Substance: CISPLATIN
     Dosage: 166 MG
     Route: 065
     Dates: start: 20170314, end: 20170317
  2. AFINITOR [Suspect]
     Active Substance: EVEROLIMUS
     Indication: HODGKIN^S DISEASE
     Dosage: CODE NOT BROKEN
     Route: 048
     Dates: start: 20170223
  3. CISPLATIN. [Suspect]
     Active Substance: CISPLATIN
     Indication: HODGKIN^S DISEASE
     Dosage: 166 MG/M2
     Route: 065
     Dates: start: 20170224
  4. PANTOPRAZOL [Concomitant]
     Active Substance: PANTOPRAZOLE SODIUM
     Indication: PRODUCT USED FOR UNKNOWN INDICATION
     Dosage: 40 MG, QD
     Route: 065
     Dates: start: 20170224
  5. COTRIMOXAZOL [Concomitant]
     Active Substance: SULFAMETHOXAZOLE\TRIMETHOPRIM
     Indication: PRODUCT USED FOR UNKNOWN INDICATION
     Dosage: 960 MG, TID
     Route: 065
     Dates: start: 20170224
  6. AFINITOR [Suspect]
     Active Substance: EVEROLIMUS
     Dosage: CODE NOT BROKEN
     Route: 065
     Dates: start: 20170314, end: 20170322
  7. DEXAMETHASONE. [Suspect]
     Active Substance: DEXAMETHASONE
     Indication: HODGKIN^S DISEASE
     Dosage: 40 MG
     Route: 065
     Dates: start: 20170224
  8. BLINDED PLACEBO [Suspect]
     Active Substance: INVESTIGATIONAL PRODUCT
     Dosage: CODE NOT BROKEN
     Route: 065
     Dates: start: 20170314, end: 20170322
  9. EUSAPRIM [Concomitant]
     Active Substance: SULFAMETHOXAZOLE\TRIMETHOPRIM
     Indication: PRODUCT USED FOR UNKNOWN INDICATION
     Dosage: 960 MG, (MON-WED-FRI ONCE ON THESE DAYS)
     Route: 065
     Dates: start: 20170224
  10. BLINDED NO TREATMENT RECEIVED [Suspect]
     Active Substance: INVESTIGATIONAL PRODUCT
     Dosage: CODE NOT BROKEN
     Route: 065
     Dates: start: 20170314, end: 20170322
  11. DEXAMETHASONE. [Suspect]
     Active Substance: DEXAMETHASONE
     Dosage: 160 MG
     Route: 065
     Dates: start: 20170314, end: 20170317
  12. BLINDED NO TREATMENT RECEIVED [Suspect]
     Active Substance: INVESTIGATIONAL PRODUCT
     Indication: HODGKIN^S DISEASE
     Dosage: CODE NOT BROKEN
     Route: 048
     Dates: start: 20170223
  13. CYTARABINE. [Suspect]
     Active Substance: CYTARABINE
     Dosage: 3330 MG
     Route: 065
     Dates: start: 20170315
  14. DIPHENHYDRAMINE. [Concomitant]
     Active Substance: DIPHENHYDRAMINE
     Indication: PRODUCT USED FOR UNKNOWN INDICATION
     Dosage: 40 MG, (1 AMPOULE)
     Route: 065
     Dates: start: 20170225
  15. ACICLOVIR [Concomitant]
     Active Substance: ACYCLOVIR
     Indication: PRODUCT USED FOR UNKNOWN INDICATION
     Dosage: 1600 MG, QD
     Route: 065
     Dates: start: 20170224
  16. BLINDED PLACEBO [Suspect]
     Active Substance: INVESTIGATIONAL PRODUCT
     Indication: HODGKIN^S DISEASE
     Dosage: CODE NOT BROKEN
     Route: 048
     Dates: start: 20170223
  17. CYTARABINE. [Suspect]
     Active Substance: CYTARABINE
     Indication: HODGKIN^S DISEASE
     Dosage: 3300 MG/M2
     Route: 065
     Dates: start: 20170225
  18. ACIC [Concomitant]
     Active Substance: ACYCLOVIR
     Indication: PRODUCT USED FOR UNKNOWN INDICATION
     Dosage: 400 MG, 1-2-1
     Route: 065
     Dates: start: 20170224

REACTIONS (6)
  - Hyponatraemia [Recovered/Resolved]
  - Decreased appetite [Recovered/Resolved]
  - Vomiting [Recovered/Resolved]
  - Hypokalaemia [Recovered/Resolved]
  - Dehydration [Recovered/Resolved]
  - Nausea [Recovered/Resolved]

NARRATIVE: CASE EVENT DATE: 20170227
